FAERS Safety Report 12669196 (Version 1)
Quarter: 2016Q3

REPORT INFORMATION
  Report Type: Spontaneous
  Country: DE (occurrence: DE)
  Receive Date: 20160819
  Receipt Date: 20160819
  Transmission Date: 20161109
  Serious: Yes (Hospitalization)
  Sender: FDA-Public Use
  Company Number: DE-JNJFOC-20140610112

PATIENT
  Age: 54 Year
  Sex: Female
  Weight: 100 kg

DRUGS (4)
  1. SEROQUEL [Concomitant]
     Active Substance: QUETIAPINE FUMARATE
     Dosage: BY NIGHT
     Route: 065
  2. XEPLION [Suspect]
     Active Substance: PALIPERIDONE PALMITATE
     Indication: SCHIZOPHRENIA
     Dosage: SINCE 8 YEARS
     Route: 030
  3. XEPLION [Suspect]
     Active Substance: PALIPERIDONE PALMITATE
     Indication: SCHIZOPHRENIA
     Dosage: FOR 4-5 YEARS
     Route: 030
     Dates: start: 201106
  4. ARIPIPRAZOL [Concomitant]
     Active Substance: ARIPIPRAZOLE
     Indication: PRODUCT USED FOR UNKNOWN INDICATION
     Route: 065

REACTIONS (14)
  - Back pain [Unknown]
  - Application site induration [Unknown]
  - Toothache [Unknown]
  - Chest pain [Unknown]
  - Overweight [Unknown]
  - Restlessness [Unknown]
  - Mobility decreased [Recovering/Resolving]
  - Headache [Unknown]
  - Sleep disorder [Unknown]
  - Disturbance in attention [Unknown]
  - Application site pain [Unknown]
  - Eating disorder [Unknown]
  - Dizziness [Unknown]
  - Hospitalisation [Recovered/Resolved]

NARRATIVE: CASE EVENT DATE: 20140708
